FAERS Safety Report 7533031-3 (Version None)
Quarter: 2011Q2

REPORT INFORMATION
  Report Type: 
  Country: None (occurrence: None)
  Receive Date: 20110608
  Receipt Date: 20110531
  Transmission Date: 20111010
  Serious: Yes (Other)
  Sender: FDA-Public Use
  Company Number: US-CEPHALON-2011002465

PATIENT
  Sex: Female

DRUGS (4)
  1. LAMICTAL [Concomitant]
  2. GABAPENTIN [Concomitant]
  3. PROZAC [Concomitant]
  4. NUVIGIL [Suspect]
     Indication: SEDATION
     Route: 048
     Dates: start: 20100601, end: 20110513

REACTIONS (1)
  - HYPOMANIA [None]
